FAERS Safety Report 6843024-7 (Version None)
Quarter: 2010Q3

REPORT INFORMATION
  Report Type: 
  Country: None (occurrence: None)
  Receive Date: 20100709
  Receipt Date: 20100625
  Transmission Date: 20110219
  Serious: Yes (Death, Hospitalization)
  Sender: FDA-Public Use
  Company Number: MPS1-1000346

PATIENT
  Age: 12 Year
  Sex: Female
  Weight: 28 kg

DRUGS (3)
  1. ALDURAZYME [Suspect]
     Indication: MUCOPOLYSACCHARIDOSIS I
     Dosage: 33.6 MG, 1X/W, INTRAVENOUS; 1.8 MG/KG, Q2W, INTRAVENOUS
     Route: 042
     Dates: start: 20050201, end: 20050801
  2. ALDURAZYME [Suspect]
     Indication: MUCOPOLYSACCHARIDOSIS I
     Dosage: 33.6 MG, 1X/W, INTRAVENOUS; 1.8 MG/KG, Q2W, INTRAVENOUS
     Route: 042
     Dates: start: 20050101
  3. FUROSEMIDE [Suspect]

REACTIONS (11)
  - BLOOD IMMUNOGLOBULIN G INCREASED [None]
  - BRONCHOSPASM [None]
  - CARDIAC ARREST [None]
  - CARDIAC FAILURE [None]
  - CARDIAC FAILURE ACUTE [None]
  - CARDIOGENIC SHOCK [None]
  - COUGH [None]
  - DISEASE PROGRESSION [None]
  - MUCOPOLYSACCHARIDOSIS IH/S [None]
  - TRACHEOBRONCHITIS [None]
  - TRYPTASE [None]
